FAERS Safety Report 7636195-6 (Version None)
Quarter: 2011Q3

REPORT INFORMATION
  Report Type: 
  Country: None (occurrence: None)
  Receive Date: 20110726
  Receipt Date: 20110713
  Transmission Date: 20111222
  Serious: Yes (Other)
  Sender: FDA-Public Use
  Company Number: US-BAYER-2011-064571

PATIENT
  Age: 38 Year
  Sex: Female

DRUGS (1)
  1. MIRENA [Suspect]
     Indication: CONTRACEPTION
     Dosage: 20 ?G, CONT
     Dates: start: 20110202, end: 20110704

REACTIONS (5)
  - SENSATION OF PRESSURE [None]
  - ABDOMINAL PAIN [None]
  - DEVICE EXPULSION [None]
  - DISCOMFORT [None]
  - VAGINAL HAEMORRHAGE [None]
